FAERS Safety Report 25631692 (Version 1)
Quarter: 2025Q3

REPORT INFORMATION
  Report Type: Spontaneous
  Country: JP (occurrence: JP)
  Receive Date: 20250801
  Receipt Date: 20250801
  Transmission Date: 20251020
  Serious: Yes (Hospitalization, Other)
  Sender: AJANTA PHARMA USA INC
  Company Number: JP-AJANTA-2025AJA00101

PATIENT
  Age: 18 Year
  Sex: Female

DRUGS (7)
  1. ARIPIPRAZOLE [Suspect]
     Active Substance: ARIPIPRAZOLE
     Indication: Depressive symptom
  2. ARIPIPRAZOLE [Suspect]
     Active Substance: ARIPIPRAZOLE
     Indication: Impulse-control disorder
  3. ARIPIPRAZOLE [Suspect]
     Active Substance: ARIPIPRAZOLE
     Indication: Self-destructive behaviour
  4. DEXTROMETHORPHAN [Suspect]
     Active Substance: DEXTROMETHORPHAN
     Indication: Somatic symptom disorder
  5. ATOMOXETINE [Concomitant]
     Active Substance: ATOMOXETINE
  6. FLUVOXAMINE [Concomitant]
     Active Substance: FLUVOXAMINE
  7. FLUVOXAMINE [Concomitant]
     Active Substance: FLUVOXAMINE

REACTIONS (2)
  - Serotonin syndrome [Recovered/Resolved]
  - Drug interaction [Recovered/Resolved]
